FAERS Safety Report 8825621 (Version 1)
Quarter: 2012Q4

REPORT INFORMATION
  Report Type: 
  Country: US (occurrence: US)
  Receive Date: 20121004
  Receipt Date: 20121004
  Transmission Date: 20130627
  Serious: Yes (Other)
  Sender: FDA-Public Use
  Company Number: US-ASTRAZENECA-2012SE40025

PATIENT
  Age: 77 Year
  Sex: Female

DRUGS (9)
  1. ATACAND [Suspect]
     Route: 048
  2. LISINOPRIL [Suspect]
     Route: 048
  3. METFORMIN [Concomitant]
  4. LOVASTATIN [Concomitant]
  5. ESTRADIOL IMG [Concomitant]
  6. CHOLESTYRAMINE [Concomitant]
  7. LORAZEPAM [Concomitant]
  8. VITAMIN D [Concomitant]
  9. FLUTICASONE [Concomitant]
     Route: 045

REACTIONS (4)
  - Fall [Unknown]
  - Upper limb fracture [Unknown]
  - Headache [Unknown]
  - Intentional drug misuse [Unknown]
